FAERS Safety Report 21765643 (Version 2)
Quarter: 2023Q1

REPORT INFORMATION
  Report Type: Spontaneous
  Country: FR (occurrence: FR)
  Receive Date: 20221222
  Receipt Date: 20230222
  Transmission Date: 20230417
  Serious: Yes (Other)
  Sender: FDA-Public Use
  Company Number: FR-SA-SAC20221220000257

PATIENT
  Age: 51 Year
  Sex: Female

DRUGS (4)
  1. DUPIXENT [Suspect]
     Active Substance: DUPILUMAB
     Indication: Asthma
     Dosage: UNK
     Dates: start: 202104
  2. SYMBICORT [Concomitant]
     Active Substance: BUDESONIDE\FORMOTEROL FUMARATE DIHYDRATE
     Dosage: MORNING AND EVENING
  3. CORTISONE [Concomitant]
     Active Substance: CORTISONE
     Dosage: UNK
  4. CORTICOSTEROID NOS [Concomitant]
     Active Substance: CORTICOSTEROID NOS
     Dosage: UNK UNK, QM

REACTIONS (2)
  - Abortion spontaneous [Unknown]
  - Exposure during pregnancy [Unknown]

NARRATIVE: CASE EVENT DATE: 20221201
